FAERS Safety Report 4365126-X (Version None)
Quarter: 2004Q2

REPORT INFORMATION
  Report Type: 
  Country: None (occurrence: None)
  Receive Date: 20040521
  Receipt Date: 20040510
  Transmission Date: 20050107
  Serious: Yes (Hospitalization)
  Sender: FDA-Public Use
  Company Number: 200310554BFR

PATIENT
  Age: 85 Year
  Sex: Female
  Weight: 66 kg

DRUGS (13)
  1. GLUCOR (ACARBOSE) [Suspect]
     Indication: DIABETES MELLITUS
     Dosage: 150 MG, TOTAL DAILY, ORAL
     Route: 048
     Dates: start: 19980215, end: 20030219
  2. DIAMICRON (GLICLAZIDE) [Suspect]
     Indication: DIABETES MELLITUS
     Dosage: SEE IMAGE
     Route: 048
     Dates: start: 19980215, end: 20030219
  3. DIAMICRON (GLICLAZIDE) [Suspect]
     Indication: DIABETES MELLITUS
     Dosage: SEE IMAGE
     Route: 048
     Dates: start: 20030219
  4. BISOPROLOL FUMARATE [Concomitant]
  5. NICARDIPINE HCL [Concomitant]
  6. ZESTRIL [Concomitant]
  7. ANTIPLATELET [Concomitant]
  8. ACE INHIBITOR [Concomitant]
  9. RIVOTRIL [Concomitant]
  10. LIPUR [Concomitant]
  11. KARDEGIC [Concomitant]
  12. TRANSIPEG [Concomitant]
  13. EUPHYTOSE [Concomitant]

REACTIONS (6)
  - DIABETES MELLITUS INADEQUATE CONTROL [None]
  - DIFFICULTY IN WALKING [None]
  - FALL [None]
  - HYPERTENSION [None]
  - HYPOGLYCAEMIA [None]
  - MALAISE [None]
